FAERS Safety Report 9144280 (Version 2)
Quarter: 2013Q1

REPORT INFORMATION
  Report Type: Report from Study
  Country: US (occurrence: US)
  Receive Date: 20130306
  Receipt Date: 20130312
  Transmission Date: 20140127
  Serious: Yes (Other)
  Sender: FDA-Public Use
  Company Number: US-ROCHE-1196864

PATIENT
  Age: 49 Year
  Sex: Female
  Weight: 64.92 kg

DRUGS (3)
  1. XELODA [Suspect]
     Indication: BREAST CANCER METASTATIC
     Route: 048
     Dates: start: 20120710
  2. XELODA [Suspect]
     Route: 048
     Dates: start: 20120507
  3. PREDNISONE [Concomitant]
     Route: 048
     Dates: start: 20130213

REACTIONS (3)
  - Neoplasm malignant [Not Recovered/Not Resolved]
  - Fatigue [Not Recovered/Not Resolved]
  - Abdominal discomfort [Not Recovered/Not Resolved]
